FAERS Safety Report 4796445-0 (Version None)
Quarter: 2005Q4

REPORT INFORMATION
  Report Type: 
  Country: None (occurrence: None)
  Receive Date: 20051007
  Receipt Date: 20050930
  Transmission Date: 20060501
  Serious: Yes (Death)
  Sender: FDA-Public Use
  Company Number: 05H-124-0302411-00

PATIENT
  Age: 28 Year
  Sex: Female
  Weight: 72 kg

DRUGS (2)
  1. ABOCAIN SPINAL INJECTION (BUPIVACAINE HYDROCHLORIDE) [Suspect]
     Indication: SPINAL ANAESTHESIA
     Dosage: 1.7 ML, ONCE, INTRASPINAL
     Dates: start: 20050903, end: 20050903
  2. HAEMACCEL (POLYGELINE) [Concomitant]

REACTIONS (8)
  - ANAESTHETIC COMPLICATION [None]
  - BLOOD GASES ABNORMAL [None]
  - CHILLS [None]
  - DEPRESSED LEVEL OF CONSCIOUSNESS [None]
  - IRRITABILITY [None]
  - OXYGEN SATURATION DECREASED [None]
  - PYREXIA [None]
  - RESTLESSNESS [None]
